FAERS Safety Report 7938463-7 (Version None)
Quarter: 2011Q4

REPORT INFORMATION
  Report Type: 
  Country: None (occurrence: None)
  Receive Date: 20111123
  Receipt Date: 20111118
  Transmission Date: 20120403
  Serious: Yes (Other)
  Sender: FDA-Public Use
  Company Number: US-PFIZER INC-2011285091

PATIENT
  Age: 49 Year
  Sex: Female
  Weight: 86.2 kg

DRUGS (3)
  1. REVATIO [Suspect]
  2. TRACLEER [Suspect]
  3. TYVASO [Suspect]
     Indication: PULMONARY ARTERIAL HYPERTENSION
     Dosage: 36 UG, 4X/DAY
     Route: 055
     Dates: start: 20111007

REACTIONS (2)
  - VISUAL ACUITY REDUCED [None]
  - VISUAL IMPAIRMENT [None]
